FAERS Safety Report 7065660-8 (Version None)
Quarter: 2010Q4

REPORT INFORMATION
  Report Type: 
  Country: None (occurrence: None)
  Receive Date: 20101022
  Receipt Date: 20101022
  Transmission Date: 20110411
  Serious: Yes (Disabling)
  Sender: FDA-Public Use
  Company Number: None

PATIENT
  Age: 14 Year
  Sex: Male
  Weight: 51.5 kg

DRUGS (2)
  1. HUMATROPE [Suspect]
     Indication: GROWTH RETARDATION
     Dosage: 2.8 MG DAILY 6 DAYS/WK SQ
     Route: 058
     Dates: start: 20031101, end: 20080501
  2. HUMATROPE [Suspect]
     Indication: GROWTH RETARDATION
     Dosage: 2.8 MG DAILY 6 DAYS/WK SQ
     Route: 058
     Dates: start: 20081001, end: 20100901

REACTIONS (1)
  - DEAFNESS NEUROSENSORY [None]
